FAERS Safety Report 4839885-3 (Version None)
Quarter: 2005Q4

REPORT INFORMATION
  Report Type: 
  Country: None (occurrence: None)
  Receive Date: 20051129
  Receipt Date: 20051117
  Transmission Date: 20060501
  Serious: Yes (Other)
  Sender: FDA-Public Use
  Company Number: US-ROCHE-425155

PATIENT
  Age: 70 Year
  Sex: Female

DRUGS (2)
  1. BONIVA [Suspect]
     Indication: OSTEOPOROSIS
     Route: 048
     Dates: start: 20050915
  2. PROTONIX [Concomitant]
     Route: 048

REACTIONS (6)
  - BACK PAIN [None]
  - COLONIC POLYP [None]
  - DYSPEPSIA [None]
  - JOINT SWELLING [None]
  - NASOPHARYNGEAL DISORDER [None]
  - PAIN IN EXTREMITY [None]
